FAERS Safety Report 14183778 (Version 1)
Quarter: 2017Q4

REPORT INFORMATION
  Report Type: Spontaneous
  Country: GB (occurrence: GB)
  Receive Date: 20171113
  Receipt Date: 20171113
  Transmission Date: 20180321
  Serious: Yes (Hospitalization)
  Sender: FDA-Public Use
  Company Number: GB-TEVA-824305ACC

PATIENT
  Age: 68 Year
  Sex: Male
  Weight: 70.9 kg

DRUGS (5)
  1. OXALIPLATIN. [Suspect]
     Active Substance: OXALIPLATIN
     Dosage: 6 CYCLES
     Route: 042
     Dates: start: 201602, end: 201606
  2. OXALIPLATIN. [Suspect]
     Active Substance: OXALIPLATIN
     Dosage: COURSE TWO CYCLE 1
     Route: 042
     Dates: start: 20161214
  3. OXALIPLATIN. [Suspect]
     Active Substance: OXALIPLATIN
     Indication: COLON CANCER METASTATIC
     Dosage: 165 MILLIGRAM DAILY;
     Route: 042
     Dates: start: 20170110, end: 20170111
  4. CAPECITABINE. [Suspect]
     Active Substance: CAPECITABINE
     Indication: COLON CANCER METASTATIC
     Dosage: 6 CYCLES
     Route: 065
     Dates: start: 201602, end: 201606
  5. BAXTER HEALTHCARE GLUCOSE [Suspect]
     Active Substance: DEXTROSE
     Indication: MEDICATION DILUTION
     Dosage: COMPOUNDED WITH OXALIPLATIN SECOND DOSE OF SECOND COURSE
     Route: 042
     Dates: start: 20170110, end: 20170111

REACTIONS (3)
  - Vomiting [Recovered/Resolved]
  - Diarrhoea [Recovered/Resolved]
  - Anaphylactic reaction [Recovered/Resolved]

NARRATIVE: CASE EVENT DATE: 20170110
